FAERS Safety Report 7002455-5 (Version None)
Quarter: 2010Q3

REPORT INFORMATION
  Report Type: 
  Country: None (occurrence: None)
  Receive Date: 20100920
  Receipt Date: 20100915
  Transmission Date: 20110219
  Serious: Yes (Death, Life-Threatening)
  Sender: FDA-Public Use
  Company Number: JP-BRISTOL-MYERS SQUIBB COMPANY-15289663

PATIENT
  Age: 36 Year
  Sex: Male

DRUGS (3)
  1. BRIPLATIN [Suspect]
     Indication: SMALL CELL LUNG CANCER STAGE UNSPECIFIED
     Dosage: DOSE 1: 5 CYCLES DOSE 2: 1 CYCLE.FROM APR09-ONGOING
     Route: 041
     Dates: start: 20070901
  2. VEPESID [Suspect]
     Indication: SMALL CELL LUNG CANCER STAGE UNSPECIFIED
     Route: 041
     Dates: start: 20070901
  3. IRINOTECAN HCL [Concomitant]
     Indication: SMALL CELL LUNG CANCER STAGE UNSPECIFIED
     Dosage: ALSO START ON JUN09 ONCE WEEKLY.INJ
     Route: 041
     Dates: start: 20090401

REACTIONS (3)
  - DISSEMINATED INTRAVASCULAR COAGULATION [None]
  - LEUKAEMIA [None]
  - MYELODYSPLASTIC SYNDROME [None]
